FAERS Safety Report 4965016-5 (Version None)
Quarter: 2006Q1

REPORT INFORMATION
  Report Type: 
  Country: None (occurrence: None)
  Receive Date: 20060130
  Receipt Date: 20051004
  Transmission Date: 20060701
  Serious: No
  Sender: FDA-Public Use
  Company Number: COT_0222_2005

PATIENT
  Age: 64 Year
  Sex: Female
  Weight: 84.8226 kg

DRUGS (14)
  1. VENTAVIS [Suspect]
     Indication: PULMONARY HYPERTENSION
     Dosage: 5 MCG 7XD IH
     Dates: start: 20050801
  2. TRACLEER [Concomitant]
  3. DILANTIN [Concomitant]
  4. REMERON [Concomitant]
  5. SEROQUEL [Concomitant]
  6. VISTARIL [Concomitant]
  7. KLONOPIN [Concomitant]
  8. LASIX [Concomitant]
  9. HALCION [Concomitant]
  10. NITROGLYCERIN [Concomitant]
  11. ULTRAM [Concomitant]
  12. EFFEXOR [Concomitant]
  13. LISINOPRIL [Concomitant]
  14. OXYGEN [Concomitant]

REACTIONS (1)
  - SKIN DISORDER [None]
